FAERS Safety Report 8296716-X (Version None)
Quarter: 2012Q2

REPORT INFORMATION
  Report Type: 
  Country: None (occurrence: None)
  Receive Date: 20120418
  Receipt Date: 20120323
  Transmission Date: 20120825
  Serious: Yes (Death)
  Sender: FDA-Public Use
  Company Number: US-BAXTER-2012BAX000946

PATIENT

DRUGS (4)
  1. CARMUSTINE [Suspect]
  2. ETOPOSIDE [Suspect]
  3. CYCLOPHOSPHAMIDE [Suspect]
  4. MELPHALAN HYDROCHLORIDE [Suspect]

REACTIONS (1)
  - PULMONARY HAEMORRHAGE [None]
